FAERS Safety Report 5456653-2 (Version None)
Quarter: 2007Q3

REPORT INFORMATION
  Report Type: 
  Country: None (occurrence: None)
  Receive Date: 20070918
  Receipt Date: 20070330
  Transmission Date: 20080115
  Serious: Yes (Hospitalization)
  Sender: FDA-Public Use
  Company Number: US-ASTRAZENECA-2006UW25459

PATIENT
  Age: 23 Year
  Sex: Male
  Weight: 65.9 kg

DRUGS (4)
  1. SEROQUEL [Suspect]
     Indication: BIPOLAR DISORDER
     Route: 048
     Dates: start: 20051021, end: 20060113
  2. SEROQUEL [Suspect]
     Indication: SLEEP DISORDER
     Route: 048
     Dates: start: 20051021, end: 20060113
  3. DEPAKOTE [Concomitant]
     Dates: start: 20051106
  4. NEURONTIN [Concomitant]
     Dates: start: 20051120

REACTIONS (1)
  - DIABETES MELLITUS [None]
